FAERS Safety Report 10091024 (Version 1)
Quarter: 2014Q2

REPORT INFORMATION
  Report Type: Spontaneous
  Country: BR (occurrence: BR)
  Receive Date: 20140421
  Receipt Date: 20140421
  Transmission Date: 20141212
  Serious: Yes (Hospitalization)
  Sender: FDA-Public Use
  Company Number: BR-PFIZER INC-2014106457

PATIENT
  Age: 83 Year
  Sex: Male
  Weight: 77 kg

DRUGS (8)
  1. LIPITOR [Suspect]
     Dosage: 20 MG, 1X/DAY
     Route: 048
     Dates: start: 20030701, end: 2013
  2. CARVEDILOL [Concomitant]
     Dosage: 3.125
  3. SPIRONOLACTONE [Concomitant]
     Dosage: 25 MG, UNK
  4. FUROSEMIDE [Concomitant]
     Dosage: 40 MG, UNK
  5. LEVOTHYROXINE [Concomitant]
     Dosage: 112 MG, UNK
  6. LOTAR [Concomitant]
     Dosage: 2.5/25
  7. OMEPRAZOLE [Concomitant]
     Dosage: 20 MG, UNK
  8. ROSUVASTATIN [Concomitant]
     Dosage: 10 MG, UNK

REACTIONS (1)
  - Lung disorder [Unknown]
